FAERS Safety Report 8124222-1 (Version None)
Quarter: 2012Q1

REPORT INFORMATION
  Report Type: 
  Country: None (occurrence: None)
  Receive Date: 20120209
  Receipt Date: 20120206
  Transmission Date: 20120608
  Serious: Yes (Other)
  Sender: FDA-Public Use
  Company Number: AR-BRISTOL-MYERS SQUIBB COMPANY-16353666

PATIENT
  Age: 55 Year
  Sex: Male

DRUGS (1)
  1. BELATACEPT [Suspect]
     Indication: RENAL TRANSPLANT
     Dosage: INTERRUPTED ON 20DEC2011
     Route: 042
     Dates: start: 20080831

REACTIONS (2)
  - HEPATITIS C [None]
  - HEPATIC FUNCTION ABNORMAL [None]
